FAERS Safety Report 10935149 (Version 1)
Quarter: 2015Q1

REPORT INFORMATION
  Report Type: Report from Study
  Country: SK (occurrence: SK)
  Receive Date: 20150320
  Receipt Date: 20150320
  Transmission Date: 20150721
  Serious: Yes (Other)
  Sender: FDA-Public Use
  Company Number: SK-PFIZER INC-2015095695

PATIENT

DRUGS (7)
  1. DOXORUBICIN HCL [Suspect]
     Active Substance: DOXORUBICIN HYDROCHLORIDE
     Indication: HODGKIN^S DISEASE
     Dosage: 25 MG/M2, ON DAYS 1, 2 AND 3 OF A 28-DAY CYCLE
     Route: 042
  2. BLEOMYCIN [Suspect]
     Active Substance: BLEOMYCIN SULFATE
     Indication: HODGKIN^S DISEASE
     Dosage: 5 MG, EVERY 8 HOURS ON DAYS 8,9, 10, 11 AND 12 OF A 28-DAY CYCLE
  3. VINCRISTINE [Suspect]
     Active Substance: VINCRISTINE
     Indication: HODGKIN^S DISEASE
     Dosage: 1.4 MG/M2, ON DAYS 1 AND 8 OF A 28-DAY CYCLE
     Route: 042
  4. LOMUSTINE. [Suspect]
     Active Substance: LOMUSTINE
     Indication: HODGKIN^S DISEASE
     Dosage: 75 MG/M2, ON DAY 1 OF A 28-DAY CYCLE
     Route: 048
  5. VINBLASTINE [Suspect]
     Active Substance: VINBLASTINE
     Indication: HODGKIN^S DISEASE
     Dosage: 6 MG/M2, ON DAYS 1 AND 8 OF A 28-DAY CYCLE
     Route: 042
  6. PREDNISONE. [Suspect]
     Active Substance: PREDNISONE
     Indication: HODGKIN^S DISEASE
     Dosage: 40 MG/M2, ON DAYS 1-14 OF A 28-DAY CYCLE
     Route: 048
  7. PROCARBAZINE [Suspect]
     Active Substance: PROCARBAZINE
     Indication: HODGKIN^S DISEASE
     Dosage: 80 MG/M2, ON DAYS 1-14 OF A 28-DAY CYCLE
     Route: 048

REACTIONS (1)
  - Pulmonary fibrosis [Unknown]
